FAERS Safety Report 24911134 (Version 5)
Quarter: 2025Q3

REPORT INFORMATION
  Report Type: Spontaneous
  Country: US (occurrence: US)
  Receive Date: 20250131
  Receipt Date: 20250717
  Transmission Date: 20251021
  Serious: No
  Sender: INSUD PHARMA
  Company Number: US-INSUD PHARMA-2501US00386

PATIENT

DRUGS (1)
  1. SLYND [Suspect]
     Active Substance: DROSPIRENONE
     Indication: Product used for unknown indication
     Route: 048
     Dates: start: 202412

REACTIONS (2)
  - Intermenstrual bleeding [Not Recovered/Not Resolved]
  - Dysmenorrhoea [Unknown]

NARRATIVE: CASE EVENT DATE: 20250101
